FAERS Safety Report 19490717 (Version 1)
Quarter: 2021Q3

REPORT INFORMATION
  Report Type: Spontaneous
  Country: DE (occurrence: DE)
  Receive Date: 20210705
  Receipt Date: 20210705
  Transmission Date: 20211014
  Serious: Yes (Hospitalization)
  Sender: FDA-Public Use
  Company Number: DE-TEVA-2021-DE-1929957

PATIENT
  Age: 69 Year
  Sex: Male
  Weight: 72 kg

DRUGS (6)
  1. ZOPICLON [Concomitant]
     Active Substance: ZOPICLONE
     Dosage: .5 DOSAGE FORMS DAILY; 7.5 MG, 0?0?0?0.5
     Route: 048
  2. OPICAPONE [Suspect]
     Active Substance: OPICAPONE
     Dosage: 50 MILLIGRAM DAILY; 0?0?1?0
     Route: 048
  3. AMOXICILLIN/CLAVULANSAURE [Suspect]
     Active Substance: AMOXICILLIN\CLAVULANATE POTASSIUM
     Dosage: 2 DOSAGE FORMS DAILY;  1?0?1?0
     Route: 048
  4. BUPROPION. [Suspect]
     Active Substance: BUPROPION
     Dosage: 150 MILLIGRAM DAILY;  1?0?0?0
     Route: 048
  5. CARBIDOPA/LEVODOPA [Concomitant]
     Active Substance: CARBIDOPA\LEVODOPA
     Dosage: GEL OVER PUMP
     Route: 033
  6. TAMSULOSIN [Concomitant]
     Active Substance: TAMSULOSIN
     Dosage: .4 MILLIGRAM DAILY;  0?0?1?0
     Route: 048

REACTIONS (8)
  - Dysuria [Unknown]
  - Memory impairment [Unknown]
  - Disorientation [Unknown]
  - Balance disorder [Unknown]
  - Language disorder [Unknown]
  - General physical health deterioration [Unknown]
  - Urinary retention [Unknown]
  - Confusional state [Unknown]
